FAERS Safety Report 25243876 (Version 3)
Quarter: 2025Q4

REPORT INFORMATION
  Report Type: Spontaneous
  Country: JP (occurrence: JP)
  Receive Date: 20250428
  Receipt Date: 20251225
  Transmission Date: 20260117
  Serious: Yes (Hospitalization, Other)
  Sender: BRISTOL-MYERS SQUIBB COMPANY
  Company Number: JP-BRISTOL-MYERS SQUIBB COMPANY-2025-059535

PATIENT

DRUGS (1)
  1. REBLOZYL [Suspect]
     Active Substance: LUSPATERCEPT-AAMT
     Indication: Anaemia of malignant disease
     Dosage: NUMBER OF DOSES: 2 DOSES
     Route: 058

REACTIONS (2)
  - Leukaemia [Not Recovered/Not Resolved]
  - Myelodysplastic syndrome transformation [Unknown]

NARRATIVE: CASE EVENT DATE: 20250414
